FAERS Safety Report 8299338-X (Version None)
Quarter: 2012Q2

REPORT INFORMATION
  Report Type: 
  Country: None (occurrence: None)
  Receive Date: 20120419
  Receipt Date: 20120416
  Transmission Date: 20120825
  Serious: Yes (Death)
  Sender: FDA-Public Use
  Company Number: ES-ELI_LILLY_AND_COMPANY-ES201204005379

PATIENT

DRUGS (3)
  1. SUNITINIB MALATE [Concomitant]
     Indication: RENAL CELL CARCINOMA
     Dosage: UNK, QD
     Route: 048
  2. GEMCITABINE HYDROCHLORIDE [Suspect]
     Indication: RENAL CELL CARCINOMA
     Dosage: UNK, ON DAY 1 AND 8 OF EACH 21 DAY CYCLE
     Route: 042
  3. CAPECITABINE [Concomitant]
     Indication: RENAL CELL CARCINOMA
     Dosage: UNK, BID ON DAYS 1-14 OF EACH 21 DAY CYCLE
     Route: 048

REACTIONS (1)
  - DEATH [None]
